FAERS Safety Report 22087341 (Version 1)
Quarter: 2023Q1

REPORT INFORMATION
  Report Type: Other
  Country: US (occurrence: None)
  Receive Date: 20230313
  Receipt Date: 20230313
  Transmission Date: 20230418
  Serious: Yes (Hospitalization)
  Sender: FDA-Public Use
  Company Number: US-ROCHE-3150024

PATIENT
  Sex: Male

DRUGS (1)
  1. CELLCEPT [Suspect]
     Active Substance: MYCOPHENOLATE MOFETIL
     Indication: Myasthenia gravis
     Dosage: 500MG 2 TABLETS AM 3 TABLETS PM
     Route: 048

REACTIONS (3)
  - Gastroenteritis salmonella [Unknown]
  - Manufacturing product shipping issue [Unknown]
  - Off label use [Unknown]
